FAERS Safety Report 6468079-3 (Version None)
Quarter: 2009Q4

REPORT INFORMATION
  Report Type: 
  Country: None (occurrence: None)
  Receive Date: 20091127
  Receipt Date: 20091113
  Transmission Date: 20100525
  Serious: Yes (Other)
  Sender: FDA-Public Use
  Company Number: 1000010336

PATIENT
  Age: 40 Year
  Sex: Female

DRUGS (4)
  1. LEXAPRO [Suspect]
     Dosage: 5 MG (5 MG, 1 IN 1 D), ORAL
     Route: 048
  2. NEXIUM [Concomitant]
  3. ZOPICLONE [Concomitant]
  4. LEVOMEPROMAZINE [Concomitant]

REACTIONS (5)
  - CHEST PAIN [None]
  - CONDITION AGGRAVATED [None]
  - DYSPHAGIA [None]
  - HYPERTENSION [None]
  - SWOLLEN TONGUE [None]
